FAERS Safety Report 7794520-X (Version None)
Quarter: 2011Q4

REPORT INFORMATION
  Report Type: 
  Country: None (occurrence: None)
  Receive Date: 20111004
  Receipt Date: 20110922
  Transmission Date: 20120403
  Serious: Yes (Hospitalization, Other)
  Sender: FDA-Public Use
  Company Number: FR-BAYER-2011-090271

PATIENT
  Age: 34 Year
  Sex: Female

DRUGS (1)
  1. MIRENA [Suspect]
     Dosage: 20 MCG/24HR, CONT
     Route: 015
     Dates: start: 20061211, end: 20110905

REACTIONS (7)
  - ECTOPIC PREGNANCY WITH INTRAUTERINE DEVICE [None]
  - POST PROCEDURAL HAEMORRHAGE [None]
  - GENITAL HAEMORRHAGE [None]
  - ABDOMINAL PAIN [None]
  - COAGULOPATHY [None]
  - BREAST SWELLING [None]
  - NAUSEA [None]
